FAERS Safety Report 23051435 (Version 1)
Quarter: 2023Q4

REPORT INFORMATION
  Report Type: Spontaneous
  Country: MX (occurrence: MX)
  Receive Date: 20231010
  Receipt Date: 20231010
  Transmission Date: 20240110
  Serious: Yes (Death, Hospitalization)
  Sender: FDA-Public Use
  Company Number: MX-BAYER-2023A141933

PATIENT
  Age: 12 Year
  Sex: Female

DRUGS (1)
  1. LAROTRECTINIB [Suspect]
     Active Substance: LAROTRECTINIB
     Indication: Astrocytoma, low grade
     Dosage: 100 MG, BID
     Route: 048
     Dates: start: 20221208, end: 20230921

REACTIONS (1)
  - Astrocytoma, low grade [Fatal]

NARRATIVE: CASE EVENT DATE: 20221201
